FAERS Safety Report 13659712 (Version 1)
Quarter: 2017Q2

REPORT INFORMATION
  Report Type: Spontaneous
  Country: US (occurrence: US)
  Receive Date: 20170616
  Receipt Date: 20170616
  Transmission Date: 20170830
  Serious: No
  Sender: FDA-Public Use
  Company Number: US-GLAXOSMITHKLINE-US2017087623

PATIENT
  Age: 71 Year
  Sex: Male

DRUGS (3)
  1. FLONASE SENSIMIST ALLERGY RELIEF [Suspect]
     Active Substance: FLUTICASONE FUROATE
     Dosage: ONE SPRAY IN EACH NOSE
     Dates: start: 20170601
  2. FLONASE [Suspect]
     Active Substance: FLUTICASONE PROPIONATE
     Indication: MULTIPLE ALLERGIES
     Dosage: UNK UNK, U
     Dates: start: 2016
  3. NASONEX [Concomitant]
     Active Substance: MOMETASONE FUROATE

REACTIONS (3)
  - Incorrect dosage administered [Unknown]
  - Epistaxis [Recovered/Resolved]
  - Nasal discomfort [Recovered/Resolved]
